FAERS Safety Report 10028575 (Version 1)
Quarter: 2014Q1

REPORT INFORMATION
  Report Type: Spontaneous
  Country: US (occurrence: US)
  Receive Date: 20140321
  Receipt Date: 20140321
  Transmission Date: 20141002
  Serious: Yes (Other)
  Sender: FDA-Public Use
  Company Number: US-GLAXOSMITHKLINE-A1055218A

PATIENT
  Age: 72 Year
  Sex: Female
  Weight: 70.5 kg

DRUGS (10)
  1. TYKERB [Suspect]
     Indication: PRODUCT USED FOR UNKNOWN INDICATION
     Dosage: 750MG PER DAY
     Route: 065
     Dates: start: 201308, end: 20131216
  2. TAXOTERE [Suspect]
     Route: 042
  3. CARBOPLATIN [Suspect]
     Route: 042
  4. HERCEPTIN [Suspect]
     Route: 042
  5. KEFLEX [Suspect]
     Indication: PRODUCT USED FOR UNKNOWN INDICATION
     Route: 065
  6. EMLA CREAM [Concomitant]
  7. ZOFRAN [Concomitant]
  8. VALTREX [Concomitant]
     Dosage: 500MG PER DAY
  9. PROTONIX [Concomitant]
     Dosage: 40MG UNKNOWN
  10. COMPAZINE [Concomitant]

REACTIONS (15)
  - Rash [Unknown]
  - Abdominal discomfort [Recovering/Resolving]
  - Frequent bowel movements [Recovering/Resolving]
  - Increased tendency to bruise [Unknown]
  - Asthenia [Unknown]
  - Dizziness [Unknown]
  - Decreased appetite [Unknown]
  - Fatigue [Unknown]
  - Visual impairment [Unknown]
  - Dysphagia [Unknown]
  - Stomatitis [Unknown]
  - Nausea [Unknown]
  - Diarrhoea [Unknown]
  - Feeling abnormal [Unknown]
  - Mucosal inflammation [Unknown]
